FAERS Safety Report 17519756 (Version 1)
Quarter: 2020Q1

REPORT INFORMATION
  Report Type: Spontaneous
  Country: DE (occurrence: DE)
  Receive Date: 20200309
  Receipt Date: 20200309
  Transmission Date: 20200409
  Serious: Yes (Other)
  Sender: FDA-Public Use
  Company Number: DE-ALLERGAN-2010188US

PATIENT
  Sex: Male
  Weight: 2 kg

DRUGS (9)
  1. DIAZEPAM. [Concomitant]
     Active Substance: DIAZEPAM
     Indication: ANXIETY
     Dosage: 15 [MG/D ]/ IF REQUIRED, 2X15 GTTS/D 2 SEPARATED DOSES
     Route: 064
     Dates: start: 20180528, end: 20190213
  2. FOLIO FORTE [Concomitant]
     Active Substance: FOLIC ACID\VITAMINS
     Indication: PROPHYLAXIS OF NEURAL TUBE DEFECT
     Dosage: 0.8 [MG/D ]
     Route: 064
     Dates: start: 20180528, end: 20190213
  3. CITALOPRAM HYDROBROMIDE - BP [Suspect]
     Active Substance: CITALOPRAM HYDROBROMIDE
     Dosage: 10 MG
     Route: 064
  4. ORFIRIL [Suspect]
     Active Substance: VALPROATE SODIUM
     Dosage: 30 MG
     Route: 064
     Dates: start: 20180528, end: 20190213
  5. ORFIRIL [Suspect]
     Active Substance: VALPROATE SODIUM
     Indication: EPILEPSY
     Dosage: 300 MG, BID
     Route: 064
  6. BISOPROLOL [Suspect]
     Active Substance: BISOPROLOL
     Indication: HYPERTENSION
     Dosage: 2.5 MG
     Route: 064
     Dates: start: 20180528, end: 20190213
  7. CITALOPRAM HYDROBROMIDE - BP [Suspect]
     Active Substance: CITALOPRAM HYDROBROMIDE
     Indication: DEPRESSION
     Dosage: 20 MG
     Route: 064
     Dates: start: 20181010, end: 20190213
  8. ORFIRIL [Suspect]
     Active Substance: VALPROATE SODIUM
     Dosage: 45 MG
     Route: 064
  9. L-THYROX [Concomitant]
     Active Substance: LEVOTHYROXINE SODIUM
     Indication: HYPOTHYROIDISM
     Dosage: 50 [?G/D ]/ INITIAL 25?G/D, DOSAGE INCREASE TO 50?G/D
     Route: 064
     Dates: start: 20180528, end: 20190213

REACTIONS (3)
  - Small for dates baby [Recovered/Resolved]
  - Hypoglycaemia [Recovered/Resolved]
  - Foetal exposure during pregnancy [Unknown]

NARRATIVE: CASE EVENT DATE: 20190213
